FAERS Safety Report 5844565-1 (Version None)
Quarter: 2008Q3

REPORT INFORMATION
  Report Type: 
  Country: None (occurrence: None)
  Receive Date: 20080814
  Receipt Date: 20080813
  Transmission Date: 20090109
  Serious: Yes (Hospitalization)
  Sender: FDA-Public Use
  Company Number: PHHO2004CA05884

PATIENT
  Sex: Male
  Weight: 71 kg

DRUGS (2)
  1. EXELON EXELON+CAP [Suspect]
     Indication: DEMENTIA ALZHEIMER'S TYPE
     Dosage: UNSPECIFIED
     Dates: start: 20020326
  2. STANHEXIDINE [Concomitant]
     Dates: start: 20030311, end: 20030311

REACTIONS (3)
  - BONE GRAFT [None]
  - KNEE ARTHROPLASTY [None]
  - OSTEOARTHRITIS [None]
